FAERS Safety Report 24266746 (Version 1)
Quarter: 2024Q3

REPORT INFORMATION
  Report Type: Spontaneous
  Country: US (occurrence: US)
  Receive Date: 20240830
  Receipt Date: 20240830
  Transmission Date: 20241016
  Serious: No
  Sender: STRIDES
  Company Number: US-STRIDES ARCOLAB LIMITED-2023SP016642

PATIENT
  Age: 11 Year
  Sex: Female

DRUGS (7)
  1. METHYLPHENIDATE [Suspect]
     Active Substance: METHYLPHENIDATE
     Indication: Disruptive mood dysregulation disorder
     Dosage: 10 MILLIGRAM, PER DAY (IMMEDIATE-RELEASE FORMULATION)
     Route: 065
  2. METHYLPHENIDATE [Suspect]
     Active Substance: METHYLPHENIDATE
     Indication: Attention deficit hyperactivity disorder
     Dosage: 18 MILLIGRAM, DAILY (EXTENDED-RELEASE FORMULATION,CONTROLLED RELEASE)
     Route: 065
  3. METHYLPHENIDATE [Suspect]
     Active Substance: METHYLPHENIDATE
     Dosage: 27 MILLIGRAM, DAILY  (EXTENDED-RELEASE FORMULATION,CONTROLLED RELEASE)
     Route: 065
  4. CITALOPRAM [Suspect]
     Active Substance: CITALOPRAM\CITALOPRAM HYDROBROMIDE
     Indication: Disruptive mood dysregulation disorder
     Dosage: 10 MILLIGRAM, PER DAY
     Route: 065
  5. CITALOPRAM [Suspect]
     Active Substance: CITALOPRAM\CITALOPRAM HYDROBROMIDE
     Indication: Attention deficit hyperactivity disorder
     Dosage: 15 MILLIGRAM, PER DAY
     Route: 065
  6. GUANFACINE [Suspect]
     Active Substance: GUANFACINE
     Indication: Disruptive mood dysregulation disorder
     Dosage: 0.5 MILLIGRAM, BID
     Route: 065
  7. GUANFACINE [Suspect]
     Active Substance: GUANFACINE
     Indication: Attention deficit hyperactivity disorder
     Dosage: UNK, BID (0.5MG DURING THE DAY AND 1MG AT NIGHT)
     Route: 065

REACTIONS (3)
  - Abdominal pain [Unknown]
  - Therapy partial responder [Unknown]
  - Off label use [Unknown]
